FAERS Safety Report 4296921-3 (Version None)
Quarter: 2004Q1

REPORT INFORMATION
  Report Type: 
  Country: None (occurrence: None)
  Receive Date: 20040126
  Receipt Date: 20030821
  Transmission Date: 20041129
  Serious: No
  Sender: FDA-Public Use
  Company Number: USA030845078

PATIENT
  Age: 11 Year
  Sex: Male
  Weight: 67 kg

DRUGS (4)
  1. STRATTERA [Suspect]
     Dosage: 40 MG/DAY
     Dates: start: 20030803
  2. ALLERGY SHOT [Concomitant]
  3. FLONASE [Concomitant]
  4. ZYRTEC [Concomitant]

REACTIONS (1)
  - PALPITATIONS [None]
